FAERS Safety Report 8406729 (Version 2)
Quarter: 2013Q1

REPORT INFORMATION
  Report Type: Report from Study
  Country: NL (occurrence: NL)
  Receive Date: 20120215
  Receipt Date: 20130102
  Transmission Date: 20140127
  Serious: Yes (Hospitalization)
  Sender: FDA-Public Use
  Company Number: NL-ROCHE-1036399

PATIENT
  Age: 50 Year
  Sex: Male
  Weight: 77.8 kg

DRUGS (4)
  1. PACLITAXEL [Suspect]
     Indication: NON-SMALL CELL LUNG CANCER
     Route: 042
     Dates: start: 20111229
  2. CARBOPLATIN [Suspect]
     Indication: NON-SMALL CELL LUNG CANCER
     Route: 042
     Dates: start: 20111229
  3. BEVACIZUMAB [Suspect]
     Indication: NON-SMALL CELL LUNG CANCER
     Route: 042
     Dates: start: 20111229
  4. NITROGLYCERIN TRANSDERMAL SYSTEM [Suspect]
     Indication: NON-SMALL CELL LUNG CANCER
     Route: 062
     Dates: start: 20111229

REACTIONS (4)
  - Ascites [Recovered/Resolved]
  - Chills [None]
  - Malaise [None]
  - Peritonitis bacterial [None]
